FAERS Safety Report 12935910 (Version 1)
Quarter: 2016Q4

REPORT INFORMATION
  Report Type: Report from Study
  Country: CN (occurrence: CN)
  Receive Date: 20161114
  Receipt Date: 20161114
  Transmission Date: 20170207
  Serious: Yes (Death)
  Sender: FDA-Public Use
  Company Number: CN-ROCHE-1828758

PATIENT
  Age: 61 Year
  Sex: Male
  Weight: 70 kg

DRUGS (1)
  1. AVASTIN [Suspect]
     Active Substance: BEVACIZUMAB
     Indication: COLON CANCER
     Dosage: THERAPY DISCONTINUED ON AN UNSPECIFIED DATE
     Route: 041
     Dates: start: 20160219

REACTIONS (7)
  - Metastases to bone [Unknown]
  - Pyrexia [Fatal]
  - Hepatic failure [Fatal]
  - Pyrexia [Not Recovered/Not Resolved]
  - Bedridden [Unknown]
  - Gait disturbance [Unknown]
  - Metastases to spine [Unknown]

NARRATIVE: CASE EVENT DATE: 20160818
